FAERS Safety Report 6342038-3 (Version None)
Quarter: 2009Q3

REPORT INFORMATION
  Report Type: 
  Country: None (occurrence: None)
  Receive Date: 20090905
  Receipt Date: 20090827
  Transmission Date: 20100115
  Serious: Yes (Hospitalization)
  Sender: FDA-Public Use
  Company Number: JP-ABBOTT-07P-087-0368559-00

PATIENT
  Sex: Male

DRUGS (4)
  1. LEUPROLIDE ACETATE [Suspect]
     Indication: PROSTATE CANCER
     Route: 058
     Dates: start: 20070412
  2. ODYNE [Suspect]
     Indication: PROSTATE CANCER
     Route: 048
     Dates: start: 20070215, end: 20070511
  3. NAFTOPIDIL [Concomitant]
     Indication: BENIGN PROSTATIC HYPERPLASIA
     Route: 048
     Dates: start: 20061214
  4. GOSERELIN ACETATE [Concomitant]
     Indication: DRUG USE FOR UNKNOWN INDICATION
     Dates: start: 20070215

REACTIONS (3)
  - BLOOD URIC ACID INCREASED [None]
  - ECZEMA [None]
  - HEPATIC FUNCTION ABNORMAL [None]
